FAERS Safety Report 10032965 (Version 1)
Quarter: 2014Q1

REPORT INFORMATION
  Report Type: Spontaneous
  Country: IT (occurrence: IT)
  Receive Date: 20140324
  Receipt Date: 20140324
  Transmission Date: 20141002
  Serious: Yes (Hospitalization)
  Sender: FDA-Public Use
  Company Number: IT-BANPHARM-20142436

PATIENT
  Age: 20 Year
  Sex: Male

DRUGS (1)
  1. LOPERAMIDE UNKNOWN PRODUCT [Suspect]
     Indication: NAUSEA
     Dosage: 6 MG,
     Route: 048

REACTIONS (5)
  - Delirium [Recovered/Resolved]
  - Catatonia [Recovered/Resolved]
  - Overdose [Recovered/Resolved]
  - Confusional state [Recovered/Resolved]
  - Urinary retention [Recovered/Resolved]
